FAERS Safety Report 17308938 (Version 1)
Quarter: 2020Q1

REPORT INFORMATION
  Report Type: Spontaneous
  Country: US (occurrence: US)
  Receive Date: 20200123
  Receipt Date: 20200123
  Transmission Date: 20200409
  Serious: Yes (Life-Threatening, Disabling, Other)
  Sender: FDA-Public Use
  Company Number: None

PATIENT
  Age: 53 Year
  Sex: Female
  Weight: 60.3 kg

DRUGS (5)
  1. NUVIGIL [Concomitant]
     Active Substance: ARMODAFINIL
  2. ADVIL [Concomitant]
     Active Substance: IBUPROFEN
  3. PROBIOTICS [Concomitant]
     Active Substance: PROBIOTICS NOS
  4. ADDERALL [Concomitant]
     Active Substance: AMPHETAMINE ASPARTATE\AMPHETAMINE SULFATE\DEXTROAMPHETAMINE SACCHARATE\DEXTROAMPHETAMINE SULFATE
  5. LEMTRADA [Suspect]
     Active Substance: ALEMTUZUMAB
     Indication: MULTIPLE SCLEROSIS
     Dosage: ?          OTHER FREQUENCY:INFUSION SERIES;?
     Route: 042
     Dates: start: 20180122, end: 20190320

REACTIONS (5)
  - Pyrexia [None]
  - Impaired work ability [None]
  - Ill-defined disorder [None]
  - Fatigue [None]
  - Immune system disorder [None]

NARRATIVE: CASE EVENT DATE: 20200101
